FAERS Safety Report 6072522-1 (Version None)
Quarter: 2009Q1

REPORT INFORMATION
  Report Type: 
  Country: None (occurrence: None)
  Receive Date: 20090210
  Receipt Date: 20090127
  Transmission Date: 20090719
  Serious: No
  Sender: FDA-Public Use
  Company Number: US-ROCHE-604043

PATIENT
  Sex: Male
  Weight: 50.8 kg

DRUGS (1)
  1. TAMIFLU [Suspect]
     Route: 048
     Dates: start: 20081217, end: 20081217

REACTIONS (3)
  - INAPPROPRIATE AFFECT [None]
  - MUSCLE TWITCHING [None]
  - SPEECH DISORDER [None]
